FAERS Safety Report 21519724 (Version 1)
Quarter: 2022Q4

REPORT INFORMATION
  Report Type: Report from Study
  Country: US (occurrence: None)
  Receive Date: 20221028
  Receipt Date: 20221028
  Transmission Date: 20230112
  Serious: Yes (Death)
  Sender: FDA-Public Use
  Company Number: 2022A358356

PATIENT
  Age: 946 Month
  Sex: Male

DRUGS (12)
  1. FASENRA [Suspect]
     Active Substance: BENRALIZUMAB
     Indication: Asthma
     Dosage: 30MG/ML EVERY EIGHT WEEKS
     Route: 058
     Dates: start: 20220428
  2. ACETAMIN TAB [Concomitant]
  3. ALBUTEROL AER HFA [Concomitant]
  4. CARBIDOPA TAB [Concomitant]
  5. CIALIS TAB [Concomitant]
  6. CLOPIDOGREL TAB [Concomitant]
  7. FLUTICASONE SPR [Concomitant]
  8. FOLIC ACID [Concomitant]
     Active Substance: FOLIC ACID
  9. METHOTREXATE [Concomitant]
     Active Substance: METHOTREXATE
  10. MODAFINIL [Concomitant]
     Active Substance: MODAFINIL
  11. PERIDEX [Concomitant]
     Active Substance: CHLORHEXIDINE GLUCONATE
     Dosage: 0.12%
  12. PREDNISONE [Concomitant]
     Active Substance: PREDNISONE

REACTIONS (1)
  - Death [Fatal]

NARRATIVE: CASE EVENT DATE: 20221001
